FAERS Safety Report 7547427-7 (Version None)
Quarter: 2011Q2

REPORT INFORMATION
  Report Type: 
  Country: None (occurrence: None)
  Receive Date: 20110614
  Receipt Date: 20110120
  Transmission Date: 20111010
  Serious: Yes (Hospitalization, Other)
  Sender: FDA-Public Use
  Company Number: US-BAYER-201039157NA

PATIENT
  Age: 31 Year
  Sex: Female
  Weight: 120.64 kg

DRUGS (4)
  1. YASMIN [Suspect]
     Indication: POLYCYSTIC OVARIES
     Dosage: UNK
     Route: 048
     Dates: start: 19940101, end: 20100101
  2. MAALOX [Concomitant]
  3. PRILOSEC [Concomitant]
  4. YASMIN [Suspect]
     Indication: CONTRACEPTION

REACTIONS (8)
  - GENERAL SYMPTOM [None]
  - MENTAL DISORDER [None]
  - GALLBLADDER NON-FUNCTIONING [None]
  - CHOLELITHIASIS [None]
  - CHOLECYSTITIS [None]
  - ANXIETY [None]
  - DEPRESSION [None]
  - PAIN [None]
